FAERS Safety Report 7887844-9 (Version None)
Quarter: 2011Q4

REPORT INFORMATION
  Report Type: 
  Country: None (occurrence: None)
  Receive Date: 20111103
  Receipt Date: 20111026
  Transmission Date: 20120403
  Serious: Yes (Other)
  Sender: FDA-Public Use
  Company Number: US-UCBSA-028991

PATIENT
  Sex: Male
  Weight: 9.126 kg

DRUGS (2)
  1. VIMPAT [Suspect]
     Dosage: RECOMENDED WEAN HIM OF BREAST MILK
     Route: 063
     Dates: start: 20100201
  2. VIMPAT [Suspect]
     Indication: CONVULSION
     Route: 064
     Dates: start: 20091201, end: 20100218

REACTIONS (7)
  - EXPOSURE DURING BREAST FEEDING [None]
  - TESTICULAR RETRACTION [None]
  - DEVELOPMENTAL DELAY [None]
  - EAR INFECTION [None]
  - MATERNAL DRUGS AFFECTING FOETUS [None]
  - BREAST FEEDING [None]
  - NASOPHARYNGITIS [None]
